FAERS Safety Report 10621572 (Version 1)
Quarter: 2014Q4

REPORT INFORMATION
  Report Type: Spontaneous
  Country: US (occurrence: None)
  Receive Date: 20141126
  Receipt Date: 20141126
  Transmission Date: 20150529
  Serious: Yes (Disabling)
  Sender: FDA-Public Use
  Company Number: None

PATIENT
  Age: 60 Year
  Sex: Female
  Weight: 77.11 kg

DRUGS (1)
  1. CIPROFLOXACIN. [Suspect]
     Active Substance: CIPROFLOXACIN
     Indication: URINARY TRACT INFECTION
     Dosage: 1 PILLX X 2 A DAY TWICE DAILY TAKEN BY MOUTH
     Route: 048
     Dates: start: 20141115, end: 20141118

REACTIONS (3)
  - Impaired work ability [None]
  - Drug ineffective [None]
  - Tendonitis [None]

NARRATIVE: CASE EVENT DATE: 20141116
